FAERS Safety Report 9420015 (Version 1)
Quarter: 2013Q3

REPORT INFORMATION
  Report Type: Spontaneous
  Country: US (occurrence: US)
  Receive Date: 20130725
  Receipt Date: 20130725
  Transmission Date: 20140515
  Serious: Yes (Hospitalization)
  Sender: FDA-Public Use
  Company Number: US-BAYER-2013-088192

PATIENT
  Age: 41 Year
  Sex: Female
  Weight: 63.04 kg

DRUGS (10)
  1. YAZ [Suspect]
     Dosage: UNK
     Dates: start: 200810, end: 201010
  2. YASMIN [Suspect]
     Indication: CONTRACEPTION
  3. OCELLA [Suspect]
     Dosage: UNK
     Dates: start: 200810, end: 201010
  4. IBUPROFEN [Concomitant]
     Dosage: 800 MG, UNK
     Route: 048
     Dates: start: 20101022
  5. ALBUTEROL [Concomitant]
     Indication: ASTHMA
  6. EXCEDRIN MIGRAINE [Concomitant]
     Indication: MIGRAINE
  7. SUMATRIPTAN [Concomitant]
     Indication: MIGRAINE
  8. IMITREX [Concomitant]
  9. VICODIN [Concomitant]
     Indication: HEADACHE
     Dosage: UNK UNK, PRN
  10. VICODIN [Concomitant]
     Indication: CHEST PAIN

REACTIONS (1)
  - Pulmonary embolism [None]
